FAERS Safety Report 7519400-6 (Version None)
Quarter: 2011Q2

REPORT INFORMATION
  Report Type: 
  Country: None (occurrence: None)
  Receive Date: 20110602
  Receipt Date: 20110527
  Transmission Date: 20111010
  Serious: Yes (Death, Hospitalization, Other)
  Sender: FDA-Public Use
  Company Number: TR-GENZYME-FLUD-1000280

PATIENT
  Age: 24 Month
  Sex: Male

DRUGS (9)
  1. CYTARABINE [Suspect]
     Indication: B PRECURSOR TYPE ACUTE LEUKAEMIA
     Dosage: 2000 MG/M2, QDX4 FROM DAY 1 - DAY 4 OVER 3 HRS, 4 HRS AFTER STARTING FLUDARABINE
     Route: 042
  2. ANTIEMETICS AND ANTINAUSEANTS [Concomitant]
     Indication: PRODUCT USED FOR UNKNOWN INDICATION
     Dosage: UNK
     Route: 065
  3. GRANULOCYTE COLONY STIMULATING FACTOR [Suspect]
     Indication: B PRECURSOR TYPE ACUTE LEUKAEMIA
     Dosage: 400 MCG/M2, QD STARTING ON DAY 0 UNTIL DAY ABSOLUTE NEUTROPHILL COUNT WAS GREATER THAN 1.0 X 10E9//L
     Route: 065
  4. FLUDARA [Suspect]
     Indication: B PRECURSOR TYPE ACUTE LEUKAEMIA
     Dosage: 30 MG/M2, QDX4 FROM DAY 1 TO DAY 4 OVER 30 MINUTES
     Route: 042
  5. CHEMOTHERAPEUTICS NOS [Concomitant]
     Indication: B PRECURSOR TYPE ACUTE LEUKAEMIA
     Dosage: UNK
     Route: 065
  6. IDARUBICIN HCL [Suspect]
     Indication: B PRECURSOR TYPE ACUTE LEUKAEMIA
     Dosage: 12 MG/M2, QDX3 ON DAY 2 - DAY 4 OVER 1 HOUR, 1 HOUR PRIOR TO STARTING ARA-C
     Route: 042
  7. CORTICOSTEROIDS [Concomitant]
     Indication: PRODUCT USED FOR UNKNOWN INDICATION
     Dosage: QID STARTING BEFORE FIRST ARA-C INFUSION UNTIL 12 HRS AFTER LAST INFUSION
     Route: 065
  8. FLUCONAZOLE [Concomitant]
     Indication: ANTIFUNGAL PROPHYLAXIS
     Dosage: 3 MG/KG, QD
     Route: 065
  9. TRIMETHOPRIM + SULFAMETHOXAZOLE [Concomitant]
     Indication: ANTIBIOTIC PROPHYLAXIS
     Dosage: 5  MG/KG, UNK
     Route: 065

REACTIONS (3)
  - DEVICE RELATED INFECTION [None]
  - FEBRILE NEUTROPENIA [None]
  - MUCOSAL INFLAMMATION [None]
